FAERS Safety Report 5296597-2 (Version None)
Quarter: 2007Q2

REPORT INFORMATION
  Report Type: 
  Country: None (occurrence: None)
  Receive Date: 20070413
  Receipt Date: 20070330
  Transmission Date: 20071010
  Serious: Yes (Hospitalization)
  Sender: FDA-Public Use
  Company Number: US-SHR-US-2007-008818

PATIENT
  Age: 58 Year
  Sex: Female

DRUGS (3)
  1. BETASERON [Suspect]
     Indication: SECONDARY PROGRESSIVE MULTIPLE SCLEROSIS
     Dosage: 4 MIU, 1X/DAY
     Route: 058
     Dates: start: 20070129, end: 20070302
  2. BETASERON [Suspect]
     Dosage: 6 MIU, EVERY 2D
     Route: 058
     Dates: start: 20070305, end: 20070313
  3. MOTRIN [Concomitant]

REACTIONS (5)
  - BACK PAIN [None]
  - CONTUSION [None]
  - FALL [None]
  - FEELING ABNORMAL [None]
  - INFLUENZA LIKE ILLNESS [None]
